FAERS Safety Report 6816856-9 (Version None)
Quarter: 2010Q3

REPORT INFORMATION
  Report Type: 
  Country: None (occurrence: None)
  Receive Date: 20100706
  Receipt Date: 20100624
  Transmission Date: 20110219
  Serious: Yes (Hospitalization, Other)
  Sender: FDA-Public Use
  Company Number: KR-JNJFOC-20100608359

PATIENT
  Age: 21 Year
  Sex: Male

DRUGS (10)
  1. RISPERIDONE [Suspect]
     Indication: PRODUCT USED FOR UNKNOWN INDICATION
     Route: 048
  2. RISPERIDONE [Suspect]
     Route: 048
  3. RISPERIDONE [Suspect]
     Route: 048
  4. RISPERIDONE [Suspect]
     Route: 048
  5. RISPERIDONE [Suspect]
     Route: 048
  6. RISPERIDONE [Suspect]
     Route: 048
  7. VALPROIC ACID [Concomitant]
     Route: 048
  8. FLUOXETINE [Concomitant]
     Route: 048
  9. BENZTROPINE MESYLATE [Concomitant]
     Route: 048
  10. OLANZAPINE [Concomitant]
     Route: 048

REACTIONS (4)
  - DEPRESSION [None]
  - HALLUCINATION, AUDITORY [None]
  - HALLUCINATION, VISUAL [None]
  - SPEECH DISORDER [None]
